FAERS Safety Report 7427887-2 (Version None)
Quarter: 2011Q2

REPORT INFORMATION
  Report Type: 
  Country: None (occurrence: None)
  Receive Date: 20110418
  Receipt Date: 20110418
  Transmission Date: 20111010
  Serious: No
  Sender: FDA-Public Use
  Company Number: None

PATIENT
  Age: 57 Year
  Sex: Female
  Weight: 58.9676 kg

DRUGS (1)
  1. ICODEXTRIN DIALYSIE 1.5 AND 2.5 BAXTER HEALTHCARE, INC. [Suspect]
     Dosage: 4 EXCHANGES DAILY OTHER
     Route: 048
     Dates: start: 20090510, end: 20090511

REACTIONS (5)
  - BODY TEMPERATURE INCREASED [None]
  - IMPAIRED HEALING [None]
  - NAUSEA [None]
  - BURNING SENSATION [None]
  - AMPUTATION [None]
